FAERS Safety Report 8388362-4 (Version None)
Quarter: 2012Q2

REPORT INFORMATION
  Report Type: 
  Country: None (occurrence: None)
  Receive Date: 20120525
  Receipt Date: 20120521
  Transmission Date: 20120825
  Serious: No
  Sender: FDA-Public Use
  Company Number: US-PFIZER INC-2012096421

PATIENT
  Sex: Female
  Weight: 86.168 kg

DRUGS (1)
  1. ADVIL [Suspect]
     Indication: HEADACHE
     Dosage: 200 MG, AS NEEDED
     Route: 048
     Dates: start: 20120416, end: 20120417

REACTIONS (6)
  - SWELLING [None]
  - SWELLING FACE [None]
  - EYELID OEDEMA [None]
  - EYE SWELLING [None]
  - CYST [None]
  - POST PROCEDURAL SWELLING [None]
